FAERS Safety Report 10229011 (Version 1)
Quarter: 2014Q2

REPORT INFORMATION
  Report Type: Spontaneous
  Country: CN (occurrence: CN)
  Receive Date: 20140610
  Receipt Date: 20140610
  Transmission Date: 20141212
  Serious: Yes (Other)
  Sender: FDA-Public Use
  Company Number: CN-ASTRAZENECA-2014SE40155

PATIENT
  Age: 24231 Day
  Sex: Female
  Weight: 75 kg

DRUGS (3)
  1. ESOMEPRAZOLE MAGNESIUM [Suspect]
     Indication: GASTRITIS
     Route: 048
     Dates: start: 20131118, end: 20131120
  2. CLARITHROMYCIN [Suspect]
     Indication: HELICOBACTER INFECTION
     Route: 048
     Dates: start: 20131118, end: 20131119
  3. FURAZOLIDONE [Suspect]
     Indication: HELICOBACTER INFECTION
     Route: 048
     Dates: start: 20131118, end: 20131120

REACTIONS (2)
  - Arrhythmia [Recovered/Resolved]
  - Palpitations [Unknown]
